FAERS Safety Report 6263628-2 (Version None)
Quarter: 2009Q3

REPORT INFORMATION
  Report Type: 
  Country: None (occurrence: None)
  Receive Date: 20090710
  Receipt Date: 20090629
  Transmission Date: 20100115
  Serious: Yes (Life-Threatening, Other)
  Sender: FDA-Public Use
  Company Number: JP-PFIZER INC-2009226728

PATIENT
  Age: 43 Year

DRUGS (8)
  1. SULPERAZON [Suspect]
     Indication: BRONCHITIS
     Dates: start: 20090127, end: 20090130
  2. KAKKON-TO [Concomitant]
     Dosage: UNK
     Route: 048
     Dates: start: 20090127, end: 20090130
  3. GEFANIL [Concomitant]
     Dosage: UNK
     Route: 048
     Dates: start: 20090127, end: 20090130
  4. LIGHTGEN T [Concomitant]
     Dosage: UNK
     Route: 048
     Dates: start: 20090127, end: 20090130
  5. BISOLVON [Concomitant]
     Dosage: UNK
     Route: 048
     Dates: start: 20090127, end: 20090130
  6. INTEBAN [Concomitant]
     Dosage: UNK
     Route: 048
     Dates: start: 20090127, end: 20090130
  7. ZITHROMAX [Concomitant]
     Dosage: UNK
     Route: 048
     Dates: start: 20090128, end: 20090130
  8. PL GRAN. [Concomitant]
     Dosage: UNK
     Route: 048
     Dates: start: 20090128, end: 20090130

REACTIONS (2)
  - AMNESIA [None]
  - ANAPHYLACTIC SHOCK [None]
